FAERS Safety Report 6294705-8 (Version None)
Quarter: 2009Q3

REPORT INFORMATION
  Report Type: 
  Country: None (occurrence: None)
  Receive Date: 20090803
  Receipt Date: 20090727
  Transmission Date: 20100115
  Serious: Yes (Death, Hospitalization, Disabling)
  Sender: FDA-Public Use
  Company Number: B0446579A

PATIENT
  Sex: Female

DRUGS (12)
  1. FLOLAN [Suspect]
     Indication: PULMONARY HYPERTENSION
     Route: 042
     Dates: start: 20020416
  2. FUROSEMIDE [Concomitant]
     Route: 048
  3. SPIRONOLACTONE [Concomitant]
     Route: 048
  4. DIGOXIN [Concomitant]
     Route: 048
  5. CORETEC [Concomitant]
     Route: 042
  6. MILLISROL (JAPAN) [Concomitant]
     Route: 042
  7. TRACLEER [Concomitant]
     Route: 048
  8. POLYGAM S/D [Concomitant]
     Route: 030
  9. MILLIS [Concomitant]
     Route: 062
  10. BAKTAR [Concomitant]
     Route: 048
  11. RIVOTRIL [Concomitant]
     Route: 048
  12. ADEROXAL [Concomitant]
     Route: 048

REACTIONS (13)
  - ASPIRATION [None]
  - BRAIN INJURY [None]
  - HYPOXIA [None]
  - MOOD ALTERED [None]
  - PANCYTOPENIA [None]
  - PLATELET COUNT DECREASED [None]
  - PNEUMONIA [None]
  - PNEUMONIA VIRAL [None]
  - PULMONARY HYPERTENSION [None]
  - PYREXIA [None]
  - RESPIRATORY FAILURE [None]
  - SEPSIS [None]
  - SUBCUTANEOUS ABSCESS [None]
